FAERS Safety Report 6387219-8 (Version None)
Quarter: 2009Q4

REPORT INFORMATION
  Report Type: 
  Country: None (occurrence: None)
  Receive Date: 20091002
  Receipt Date: 20090924
  Transmission Date: 20100525
  Serious: Yes (Other)
  Sender: FDA-Public Use
  Company Number: US-ABBOTT-09P-163-0599377-00

PATIENT
  Sex: Female

DRUGS (8)
  1. HUMIRA [Suspect]
     Indication: RHEUMATOID ARTHRITIS
     Route: 058
     Dates: start: 20030101, end: 20090801
  2. METHOTREXATE [Concomitant]
     Indication: RHEUMATOID ARTHRITIS
  3. FOLIC ACID [Concomitant]
     Indication: RHEUMATOID ARTHRITIS
  4. TYLENOL (CAPLET) [Concomitant]
     Indication: OSTEOPOROSIS
     Dosage: UNKNOWN
  5. PAXIL [Concomitant]
     Indication: DRUG USE FOR UNKNOWN INDICATION
     Dosage: UNKNOWN
  6. ZYRTEC [Concomitant]
     Indication: HYPERSENSITIVITY
     Dosage: UNKNOWN
  7. CLONIDINE [Concomitant]
     Indication: HYPERTENSION
     Dosage: UNKNOWN
  8. DARVOCET [Concomitant]
     Indication: OSTEOPOROSIS
     Dosage: AS NEEDED

REACTIONS (5)
  - BRONCHITIS [None]
  - CATARACT [None]
  - DYSPHAGIA [None]
  - GLAUCOMA [None]
  - INTRAOCULAR PRESSURE INCREASED [None]
